FAERS Safety Report 16217399 (Version 1)
Quarter: 2019Q2

REPORT INFORMATION
  Report Type: Spontaneous
  Country: US (occurrence: US)
  Receive Date: 20190419
  Receipt Date: 20190419
  Transmission Date: 20190711
  Serious: No
  Sender: FDA-Public Use
  Company Number: US-PFIZER INC-2019164114

PATIENT
  Sex: Male

DRUGS (1)
  1. ALPRAZOLAM. [Suspect]
     Active Substance: ALPRAZOLAM
     Dosage: UNK

REACTIONS (4)
  - Therapeutic product effect incomplete [Unknown]
  - Dizziness [Unknown]
  - Feeling abnormal [Unknown]
  - Somnolence [Unknown]
